FAERS Safety Report 5884572-6 (Version None)
Quarter: 2008Q3

REPORT INFORMATION
  Report Type: 
  Country: None (occurrence: None)
  Receive Date: 20080915
  Receipt Date: 20080915
  Transmission Date: 20090109
  Serious: No
  Sender: FDA-Public Use
  Company Number: None

PATIENT

DRUGS (3)
  1. LORAZEPAM [Suspect]
     Indication: ANXIETY
     Dosage: 1 TAB PO BID
     Route: 048
     Dates: start: 20070101, end: 20080101
  2. LORAZEPAM [Suspect]
     Indication: DEPRESSION
     Dosage: 1 TAB PO BID
     Route: 048
     Dates: start: 20070101, end: 20080101
  3. . [Concomitant]

REACTIONS (3)
  - DISEASE RECURRENCE [None]
  - DRUG INEFFECTIVE [None]
  - PHARMACEUTICAL PRODUCT COMPLAINT [None]
